FAERS Safety Report 7263375-4 (Version None)
Quarter: 2011Q1

REPORT INFORMATION
  Report Type: 
  Country: None (occurrence: None)
  Receive Date: 20110130
  Receipt Date: 20101025
  Transmission Date: 20110831
  Serious: No
  Sender: FDA-Public Use
  Company Number: US-ABBOTT-10P-163-0681698-00

PATIENT
  Sex: Male
  Weight: 68.1 kg

DRUGS (2)
  1. ASACOL [Concomitant]
     Indication: CROHN'S DISEASE
     Dosage: UNKNOWN
     Dates: start: 20070101
  2. HUMIRA [Suspect]
     Indication: CROHN'S DISEASE
     Dates: start: 20090101

REACTIONS (2)
  - DIARRHOEA [None]
  - CROHN'S DISEASE [None]
